FAERS Safety Report 9259990 (Version 1)
Quarter: 2013Q2

REPORT INFORMATION
  Report Type: Report from Study
  Country: JP (occurrence: JP)
  Receive Date: 20130429
  Receipt Date: 20130429
  Transmission Date: 20140414
  Serious: Yes (Other)
  Sender: FDA-Public Use
  Company Number: JP-MERCK-1304JPN015842

PATIENT
  Age: 74 Year
  Sex: Female
  Weight: 52 kg

DRUGS (21)
  1. PEGINTRON [Suspect]
     Indication: CHRONIC HEPATITIS C
     Dosage: 1.5 MICROGRAM PER KILOGRAM, QW
     Route: 058
     Dates: start: 20120320, end: 20120326
  2. PEGINTRON [Suspect]
     Dosage: 1.0 MICROGRAM PER KILOGRAM, QW
     Route: 058
     Dates: start: 20120327, end: 20120402
  3. PEGINTRON [Suspect]
     Dosage: 1.5 MICROGRAM PER KILOGRAM, QW
     Route: 058
     Dates: start: 20120403, end: 20120416
  4. PEGINTRON [Suspect]
     Dosage: 1.0 MICROGRAM PER KILOGRAM, QW
     Route: 058
     Dates: start: 20120417, end: 20120426
  5. PEGINTRON [Suspect]
     Dosage: 1.5 MICROGRAM PER KILOGRAM, QW
     Route: 058
     Dates: start: 20120427
  6. PEGINTRON [Suspect]
     Dosage: 1.0 MICROGRAM PER KILOGRAM, QW
     Route: 058
     Dates: start: 20120410, end: 20120501
  7. PEGINTRON [Suspect]
     Dosage: 0.75 MICROGRAM PER KILOGRAM, UNK
     Route: 058
     Dates: start: 20120515, end: 20120522
  8. PEGINTRON [Suspect]
     Dosage: 1.16  MICROGRAM PER KILOGRAM, QW
     Route: 058
     Dates: start: 20120529, end: 20120731
  9. PEGINTRON [Suspect]
     Dosage: 1.07  MICROGRAM PER KILOGRAM, QW
     Route: 058
     Dates: start: 20120807
  10. REBETOL [Suspect]
     Indication: CHRONIC HEPATITIS C
     Dosage: 600 MG, QD
     Route: 048
     Dates: start: 20120320, end: 20120320
  11. REBETOL [Suspect]
     Dosage: 400 MG, QD
     Route: 048
     Dates: start: 20120321, end: 20120410
  12. REBETOL [Suspect]
     Dosage: 200 MG, QD
     Route: 048
     Dates: start: 20120411, end: 20120501
  13. REBETOL [Suspect]
     Dosage: 200 MG, QD
     Route: 048
     Dates: start: 20120529, end: 20120611
  14. REBETOL [Suspect]
     Dosage: 200MG/ A DAY ON EVERY OTHER DAY
     Route: 048
     Dates: start: 20120612, end: 20120626
  15. REBETOL [Suspect]
     Dosage: 200MG AND 400MG ON EVERY OTHER DAY
     Route: 048
     Dates: start: 20120627, end: 20120723
  16. REBETOL [Suspect]
     Dosage: 200 MG, QD
     Route: 048
     Dates: start: 20120724
  17. TELAVIC [Suspect]
     Indication: CHRONIC HEPATITIS C
     Dosage: 1.5 G, QD
     Route: 048
     Dates: start: 20120320, end: 20120403
  18. TELAVIC [Suspect]
     Dosage: 1.0 G, QD
     Route: 048
     Dates: start: 20120404, end: 20120417
  19. TELAVIC [Suspect]
     Dosage: 750 MG, QD
     Route: 048
     Dates: start: 20120418, end: 20120501
  20. TELAVIC [Suspect]
     Dosage: 750 MG, QD
     Route: 048
     Dates: start: 20120515, end: 20120626
  21. ALOSITOL [Concomitant]
     Indication: HYPERURICAEMIA
     Dosage: 100 MG, QD
     Route: 048
     Dates: start: 20120328, end: 20120507

REACTIONS (2)
  - Retinopathy [Not Recovered/Not Resolved]
  - Haemoglobin decreased [Not Recovered/Not Resolved]
